FAERS Safety Report 4380888-3 (Version None)
Quarter: 2004Q2

REPORT INFORMATION
  Report Type: 
  Country: None (occurrence: None)
  Receive Date: 20040616
  Receipt Date: 20040527
  Transmission Date: 20050107
  Serious: Yes (Hospitalization)
  Sender: FDA-Public Use
  Company Number: NL-JNJFOC-20040600194

PATIENT
  Age: 68 Year
  Sex: Male

DRUGS (6)
  1. CORDIUM (BEPRIDIL HYDROCHLORIDE MONOHYDRATE) UNSPECIFIED [Suspect]
     Indication: DRUG USE FOR UNKNOWN INDICATION
     Dosage: 400 MG, 1 IN 1 DAY
     Dates: start: 20040308, end: 20040402
  2. INDAPAMIDE [Concomitant]
  3. SODIUM GUALENATE (SODIUM GUALENATE) [Concomitant]
  4. FUROSEMIDE [Concomitant]
  5. FAMOTIDINE [Concomitant]
  6. IMIDAPRIL HYDROCHLORIDE  (IMIDAPRIL HYDROCHLORIDE) [Concomitant]

REACTIONS (7)
  - ANOREXIA [None]
  - ASPARTATE AMINOTRANSFERASE INCREASED [None]
  - BLOOD ALKALINE PHOSPHATASE INCREASED [None]
  - BLOOD LACTATE DEHYDROGENASE INCREASED [None]
  - C-REACTIVE PROTEIN INCREASED [None]
  - GAMMA-GLUTAMYLTRANSFERASE INCREASED [None]
  - MALAISE [None]
